FAERS Safety Report 25866578 (Version 1)
Quarter: 2025Q3

REPORT INFORMATION
  Report Type: Report from Study
  Country: CO (occurrence: CO)
  Receive Date: 20250930
  Receipt Date: 20250930
  Transmission Date: 20251020
  Serious: Yes (Other)
  Sender: ABBVIE
  Company Number: CO-ABBVIE-6477853

PATIENT
  Age: 37 Year
  Sex: Female
  Weight: 88 kg

DRUGS (2)
  1. SKYRIZI [Suspect]
     Active Substance: RISANKIZUMAB-RZAA
     Indication: Psoriasis
     Dosage: SOLUTION FOR INJECTION IN PRE-FILLED SYRINGE
     Route: 058
     Dates: start: 20210615
  2. TRAMADOL [Suspect]
     Active Substance: TRAMADOL
     Indication: Pain
     Route: 042

REACTIONS (6)
  - Nephrolithiasis [Unknown]
  - Pain [Unknown]
  - Hypotension [Recovered/Resolved]
  - Abdominal pain [Not Recovered/Not Resolved]
  - Heavy menstrual bleeding [Not Recovered/Not Resolved]
  - Leiomyoma [Unknown]

NARRATIVE: CASE EVENT DATE: 20240101
